FAERS Safety Report 5276505-0 (Version None)
Quarter: 2007Q1

REPORT INFORMATION
  Report Type: 
  Country: None (occurrence: None)
  Receive Date: 20070327
  Receipt Date: 20070322
  Transmission Date: 20070707
  Serious: Yes (Hospitalization)
  Sender: FDA-Public Use
  Company Number: DEWYE643324NOV06

PATIENT
  Sex: Female
  Weight: 55 kg

DRUGS (3)
  1. VENLAFAXINE HCL [Suspect]
     Dosage: UNKNOWN
     Route: 048
     Dates: start: 20061123, end: 20061123
  2. VIVINOX SCHLAFDRAGEES /OLD FORM/ [Suspect]
     Dosage: UNKNOWN
     Route: 048
     Dates: start: 20061123, end: 20061123
  3. ABILIFY [Suspect]
     Dosage: 7 TABLETS (OVERDOSE AMOUNT 70MG))
     Route: 048
     Dates: start: 20061123, end: 20061123

REACTIONS (8)
  - AGITATION [None]
  - BLOOD POTASSIUM DECREASED [None]
  - COORDINATION ABNORMAL [None]
  - DISORIENTATION [None]
  - DYSARTHRIA [None]
  - INTENTIONAL OVERDOSE [None]
  - SOMNOLENCE [None]
  - TACHYCARDIA [None]
